FAERS Safety Report 10349643 (Version 1)
Quarter: 2014Q3

REPORT INFORMATION
  Report Type: Spontaneous
  Country: JP (occurrence: None)
  Receive Date: 20140728
  Receipt Date: 20140728
  Transmission Date: 20150326
  Serious: Yes (Hospitalization, Other)
  Sender: FDA-Public Use
  Company Number: FK201402833

PATIENT
  Age: 84 Year
  Sex: Male

DRUGS (6)
  1. METHYLPREDNISOLONE [Suspect]
     Active Substance: METHYLPREDNISOLONE
     Indication: STILL^S DISEASE ADULT ONSET
     Dates: start: 201108
  2. PREDNISOLONE. [Suspect]
     Active Substance: PREDNISOLONE
     Indication: STILL^S DISEASE ADULT ONSET
     Dates: start: 201108
  3. INSULIN (INSULIN) [Concomitant]
     Active Substance: INSULIN NOS
  4. CYCLOSPORIN A (CICLOSPORIN) [Concomitant]
     Active Substance: CYCLOSPORINE
  5. ETANERCEPT (ETANERCEPT) [Concomitant]
  6. METHOTREXATE (METHOTREXATE) [Concomitant]
     Active Substance: METHOTREXATE

REACTIONS (3)
  - Diabetes mellitus [None]
  - Myopathy [None]
  - Secondary immunodeficiency [None]
